FAERS Safety Report 9558630 (Version 2)
Quarter: 2013Q4

REPORT INFORMATION
  Report Type: Spontaneous
  Country: US (occurrence: US)
  Receive Date: 20130926
  Receipt Date: 20131115
  Transmission Date: 20140711
  Serious: No
  Sender: FDA-Public Use
  Company Number: US-BIOGENIDEC-2013BI045011

PATIENT
  Sex: Female

DRUGS (9)
  1. TECFIDERA [Suspect]
     Indication: MULTIPLE SCLEROSIS
     Route: 048
     Dates: start: 20130503
  2. VAGIFEM [Concomitant]
  3. CLIMARA [Concomitant]
  4. BACLOFEN [Concomitant]
  5. ELMIRON [Concomitant]
  6. MAXALT [Concomitant]
  7. PROMETRIUM [Concomitant]
  8. REQUIP [Concomitant]
  9. TYLENOL [Concomitant]

REACTIONS (6)
  - Nausea [Unknown]
  - Headache [Unknown]
  - Fatigue [Unknown]
  - Abdominal discomfort [Unknown]
  - Flushing [Unknown]
  - Diarrhoea [Unknown]
